FAERS Safety Report 8387265-9 (Version None)
Quarter: 2012Q2

REPORT INFORMATION
  Report Type: 
  Country: None (occurrence: None)
  Receive Date: 20120525
  Receipt Date: 20120521
  Transmission Date: 20120825
  Serious: No
  Sender: FDA-Public Use
  Company Number: US-ASTRAZENECA-2008UW27974

PATIENT
  Age: 51 Year
  Sex: Female

DRUGS (6)
  1. OMEPRAZOLE [Suspect]
     Route: 048
     Dates: start: 20081107, end: 20081210
  2. ACIPHEX [Concomitant]
  3. PROTONIX [Concomitant]
  4. NEXIUM [Suspect]
     Route: 048
     Dates: start: 20080608, end: 20081021
  5. PRILOSEC OTC [Suspect]
     Route: 048
     Dates: start: 20080608, end: 20081021
  6. OMEPRAZOLE [Suspect]
     Route: 048
     Dates: start: 20090414, end: 20100108

REACTIONS (10)
  - ABDOMINAL DISCOMFORT [None]
  - DRUG INEFFECTIVE [None]
  - INTENTIONAL DRUG MISUSE [None]
  - PAIN [None]
  - CHEST PAIN [None]
  - GASTRIC HAEMORRHAGE [None]
  - HEADACHE [None]
  - DISCOMFORT [None]
  - STRESS [None]
  - MALAISE [None]
